FAERS Safety Report 12757856 (Version 1)
Quarter: 2016Q3

REPORT INFORMATION
  Report Type: Spontaneous
  Country: US (occurrence: US)
  Receive Date: 20160919
  Receipt Date: 20160919
  Transmission Date: 20161109
  Serious: No
  Sender: FDA-Public Use
  Company Number: US-PFIZER INC-2016433370

PATIENT
  Sex: Female

DRUGS (4)
  1. XANAX [Suspect]
     Active Substance: ALPRAZOLAM
     Dosage: UNK
  2. TEMAZEPAM. [Suspect]
     Active Substance: TEMAZEPAM
  3. LISINOPRIL. [Suspect]
     Active Substance: LISINOPRIL
  4. CLARITIN [Suspect]
     Active Substance: LORATADINE

REACTIONS (1)
  - Drug hypersensitivity [Unknown]
